FAERS Safety Report 5084328-0 (Version None)
Quarter: 2006Q3

REPORT INFORMATION
  Report Type: 
  Country: None (occurrence: None)
  Receive Date: 20060817
  Receipt Date: 20060817
  Transmission Date: 20061208
  Serious: Yes (Hospitalization)
  Sender: FDA-Public Use
  Company Number: None

PATIENT
  Sex: Male
  Weight: 52.1637 kg

DRUGS (2)
  1. ALIMTA [Suspect]
     Indication: NEOPLASM MALIGNANT
     Dosage: 820 MG IV  ONCE EVERY 3 WEEKS
     Route: 042
     Dates: start: 20060317
  2. AVASTIN [Suspect]
     Indication: NEOPLASM MALIGNANT
     Dosage: 780 MG IV  ONCE EVERY 3 WEEKS
     Route: 042
     Dates: start: 20060317

REACTIONS (2)
  - DEHYDRATION [None]
  - FEEDING TUBE COMPLICATION [None]
